FAERS Safety Report 11991975 (Version 1)
Quarter: 2016Q1

REPORT INFORMATION
  Report Type: Spontaneous
  Country: US (occurrence: US)
  Receive Date: 20160203
  Receipt Date: 20160203
  Transmission Date: 20160526
  Serious: No
  Sender: FDA-Public Use
  Company Number: US-JNJFOC-20151224761

PATIENT
  Age: 89 Year
  Sex: Male

DRUGS (3)
  1. ALL OTHER THERAPEUTIC PRODUCTS [Concomitant]
     Active Substance: UNSPECIFIED INGREDIENT
     Indication: CARDIAC DISORDER
     Dosage: DAILY
     Route: 065
  2. ZYRTEC [Suspect]
     Active Substance: CETIRIZINE HYDROCHLORIDE
     Indication: SWOLLEN TONGUE
     Dosage: 1 TABLET, EVERY NIGHT
     Route: 048
  3. ZYRTEC [Suspect]
     Active Substance: CETIRIZINE HYDROCHLORIDE
     Route: 048

REACTIONS (5)
  - Product use issue [Unknown]
  - Off label use [Unknown]
  - Therapeutic response unexpected [Unknown]
  - Somnolence [Recovered/Resolved]
  - Fatigue [Recovered/Resolved]
